FAERS Safety Report 5584682-7 (Version None)
Quarter: 2008Q1

REPORT INFORMATION
  Report Type: 
  Country: None (occurrence: None)
  Receive Date: 20080103
  Receipt Date: 20071218
  Transmission Date: 20080703
  Serious: Yes (Hospitalization)
  Sender: FDA-Public Use
  Company Number: 2007EU002791

PATIENT
  Age: 64 Year
  Sex: Male

DRUGS (4)
  1. PROGRAF [Suspect]
     Indication: LIVER TRANSPLANT
     Dosage: 1 MG, /D, ORAL
     Route: 048
     Dates: start: 20071014
  2. ACUPAN [Suspect]
     Dosage: 120 MG,  /D, IV NOS
     Route: 042
     Dates: start: 20071017, end: 20071020
  3. MORPHINE [Suspect]
     Dosage: 30MG,  /D, SUBCUTANEOUS
     Route: 058
     Dates: start: 20071017
  4. MEDROL [Suspect]
     Dosage: 16 MG,   /D, ORAL
     Route: 048
     Dates: start: 20071017

REACTIONS (1)
  - DELIRIUM [None]
